FAERS Safety Report 25588648 (Version 1)
Quarter: 2025Q3

REPORT INFORMATION
  Report Type: Spontaneous
  Country: CN (occurrence: CN)
  Receive Date: 20250722
  Receipt Date: 20250722
  Transmission Date: 20251021
  Serious: Yes (Other)
  Sender: CHEPLAPHARM
  Company Number: CN-CHEPLA-2025008762

PATIENT
  Age: 47 Year
  Sex: Female

DRUGS (11)
  1. CAPECITABINE [Suspect]
     Active Substance: CAPECITABINE
  2. CARBOPLATIN [Suspect]
     Active Substance: CARBOPLATIN
  3. GEMCITABINE [Suspect]
     Active Substance: GEMCITABINE
  4. TORIPALIMAB [Suspect]
     Active Substance: TORIPALIMAB
  5. TORIPALIMAB [Suspect]
     Active Substance: TORIPALIMAB
  6. RIVOCERANIB [Suspect]
     Active Substance: RIVOCERANIB
  7. RIVOCERANIB [Suspect]
     Active Substance: RIVOCERANIB
  8. OXALIPLATIN [Suspect]
     Active Substance: OXALIPLATIN
  9. TISLELIZUMAB [Suspect]
     Active Substance: TISLELIZUMAB
  10. PACLITAXEL [Suspect]
     Active Substance: PACLITAXEL
  11. OLAPARIB [Suspect]
     Active Substance: OLAPARIB

REACTIONS (6)
  - Interstitial lung disease [Unknown]
  - Adrenal insufficiency [Unknown]
  - Pneumonitis [Unknown]
  - Hypothyroidism [Unknown]
  - Therapeutic product effect incomplete [Unknown]
  - Off label use [Recovered/Resolved]

NARRATIVE: CASE EVENT DATE: 20230401
